FAERS Safety Report 15211218 (Version 1)
Quarter: 2018Q3

REPORT INFORMATION
  Report Type: Spontaneous
  Country: US (occurrence: US)
  Receive Date: 20180630
  Receipt Date: 20180630
  Transmission Date: 20181010
  Serious: Yes (Hospitalization, Disabling, Other)
  Sender: FDA-Public Use
  Company Number: None

PATIENT
  Age: 45 Year
  Sex: Female
  Weight: 134.1 kg

DRUGS (5)
  1. IC LOSARTAN POTASSIUM 50M MG TABLETS [Suspect]
     Active Substance: LOSARTAN POTASSIUM
     Indication: HYPERTENSION
     Dosage: ?          QUANTITY:1.5 TABLET(S);?
     Route: 048
  2. VITAMIN D3 [Concomitant]
     Active Substance: CHOLECALCIFEROL
  3. HYDROCHLOROTHIAZIDE. [Concomitant]
     Active Substance: HYDROCHLOROTHIAZIDE
  4. PRAVASTATIN. [Concomitant]
     Active Substance: PRAVASTATIN
  5. LOW DOSE CHEWABLE ASPIRIN [Concomitant]
     Active Substance: ASPIRIN

REACTIONS (6)
  - Visual impairment [None]
  - Anxiety [None]
  - Muscle twitching [None]
  - Headache [None]
  - Tremor [None]
  - Diplopia [None]

NARRATIVE: CASE EVENT DATE: 20180101
